FAERS Safety Report 6373575-3 (Version None)
Quarter: 2009Q3

REPORT INFORMATION
  Report Type: 
  Country: None (occurrence: None)
  Receive Date: 20090924
  Receipt Date: 20090217
  Transmission Date: 20100115
  Serious: Yes (Other)
  Sender: FDA-Public Use
  Company Number: US-ASTRAZENECA-2009UW04547

PATIENT
  Age: 36 Year
  Sex: Female
  Weight: 115.7 kg

DRUGS (2)
  1. SEROQUEL [Suspect]
     Indication: SCHIZOAFFECTIVE DISORDER
     Route: 048
     Dates: start: 20060801
  2. METHYLDOPA [Concomitant]
     Indication: HYPERTENSION

REACTIONS (2)
  - DRUG EXPOSURE DURING PREGNANCY [None]
  - HYPERTENSION [None]
